FAERS Safety Report 21974953 (Version 2)
Quarter: 2023Q1

REPORT INFORMATION
  Report Type: Report from Study
  Country: US (occurrence: US)
  Receive Date: 20230209
  Receipt Date: 20230317
  Transmission Date: 20230418
  Serious: No
  Sender: FDA-Public Use
  Company Number: US-ACADIA PHARMACEUTICALS INC.-ACA-2022-PIM-004059

PATIENT
  Sex: Female

DRUGS (10)
  1. NUPLAZID [Suspect]
     Active Substance: PIMAVANSERIN TARTRATE
     Indication: Hallucination
     Dosage: 34 MILLIGRAM, QD
     Route: 048
  2. NUPLAZID [Suspect]
     Active Substance: PIMAVANSERIN TARTRATE
     Indication: Delusion
     Dosage: 34 MILLIGRAM, QD
     Route: 048
  3. NUPLAZID [Suspect]
     Active Substance: PIMAVANSERIN TARTRATE
     Indication: Parkinson^s disease
     Dosage: 34 MILLIGRAM, QD
     Route: 048
  4. ATENOLOL [Concomitant]
     Active Substance: ATENOLOL
     Dosage: 50 MILLIGRAM
  5. CARBIDOPA LEVODOPA [Concomitant]
     Active Substance: CARBIDOPA\LEVODOPA
     Dosage: 25-100 MG
  6. ENALAPRIL MALEATE [Concomitant]
     Active Substance: ENALAPRIL MALEATE
     Dosage: 20 MILLIGRAM
  7. LANTUS [Concomitant]
     Active Substance: INSULIN GLARGINE
     Dosage: 1000 UNITS SOLOS SOP
  8. ROPINIROLE HYDROCHLORIDE [Concomitant]
     Active Substance: ROPINIROLE HYDROCHLORIDE
     Dosage: 2 MILLIGRAM
  9. VALSARTAN [Concomitant]
     Active Substance: VALSARTAN
     Dosage: 160 MILLIGRAM
  10. ST. JOSEPH ASPIRIN [Concomitant]
     Dosage: 81 MILLIGRAM

REACTIONS (4)
  - Product dose omission issue [Recovered/Resolved]
  - Product use complaint [Recovered/Resolved]
  - Product dose omission issue [Recovered/Resolved]
  - Product dose omission issue [Recovered/Resolved]
